FAERS Safety Report 8287398-1 (Version None)
Quarter: 2012Q2

REPORT INFORMATION
  Report Type: 
  Country: None (occurrence: None)
  Receive Date: 20120416
  Receipt Date: 20120410
  Transmission Date: 20120825
  Serious: Yes (Other)
  Sender: FDA-Public Use
  Company Number: US-PFIZER INC-2012040197

PATIENT
  Sex: Female
  Weight: 102.4 kg

DRUGS (11)
  1. LYRICA [Suspect]
     Indication: FRACTURE
  2. LYRICA [Suspect]
     Indication: BACK DISORDER
  3. HYDROCODONE [Concomitant]
     Dosage: UNK
  4. CELEBREX [Concomitant]
     Indication: OSTEOPOROSIS
     Dosage: 200 MG, 1X/DAY
  5. LYRICA [Suspect]
     Indication: SPINAL FRACTURE
     Dosage: 3X200MG DAILY
  6. ADVAIR DISKUS 100/50 [Concomitant]
     Indication: ASTHMA
     Dosage: 250/50MCG
  7. LYRICA [Suspect]
     Indication: NERVOUS SYSTEM DISORDER
     Dosage: 200 MG, ONCE IN MORNING
     Route: 048
  8. LISINOPRIL [Concomitant]
     Indication: HYPERTENSION
     Dosage: 40 MG, 1X/DAY
  9. ALBUTEROL [Concomitant]
     Indication: ASTHMA
     Dosage: 0.83MG/2.5ML
  10. CELEBREX [Concomitant]
     Indication: ARTHRITIS
  11. HYDROCODONE [Concomitant]
     Indication: PAIN
     Dosage: 500 MG, EVERY 4 HRS

REACTIONS (3)
  - IMPAIRED DRIVING ABILITY [None]
  - SOMNOLENCE [None]
  - DIZZINESS [None]
